FAERS Safety Report 20638448 (Version 1)
Quarter: 2022Q1

REPORT INFORMATION
  Report Type: Spontaneous
  Country: US (occurrence: None)
  Receive Date: 20220325
  Receipt Date: 20220325
  Transmission Date: 20220424
  Serious: Yes (Hospitalization)
  Sender: FDA-Public Use
  Company Number: 2022A120384

PATIENT

DRUGS (2)
  1. CALQUENCE [Interacting]
     Active Substance: ACALABRUTINIB
     Dosage: TWO PILLS EVERY 12 HOURS
     Route: 048
  2. CALQUENCE [Interacting]
     Active Substance: ACALABRUTINIB
     Dosage: ONE PILL A DAY
     Route: 048

REACTIONS (8)
  - Drug interaction [Unknown]
  - Vitreous floaters [Unknown]
  - Dizziness [Unknown]
  - Body temperature increased [Unknown]
  - Chills [Unknown]
  - Oral herpes [Unknown]
  - Headache [Unknown]
  - Nausea [Unknown]
